FAERS Safety Report 9547878 (Version 1)
Quarter: 2013Q3

REPORT INFORMATION
  Report Type: Spontaneous
  Country: US (occurrence: US)
  Receive Date: 20130924
  Receipt Date: 20130924
  Transmission Date: 20140515
  Serious: No
  Sender: FDA-Public Use
  Company Number: US-PURDUE-USA-2012-0080434

PATIENT
  Age: 63 Year
  Sex: 0

DRUGS (1)
  1. MORPHINE SULFATE (SIMILAR TO NDA 19-516) [Suspect]
     Indication: PAIN
     Dosage: UNK

REACTIONS (4)
  - Sedation [Unknown]
  - Hypersomnia [Unknown]
  - Somnolence [Unknown]
  - Unevaluable event [Unknown]
